FAERS Safety Report 8369389-5 (Version None)
Quarter: 2012Q2

REPORT INFORMATION
  Report Type: 
  Country: None (occurrence: None)
  Receive Date: 20120518
  Receipt Date: 20120515
  Transmission Date: 20120825
  Serious: Yes (Death, Hospitalization, Other)
  Sender: FDA-Public Use
  Company Number: FR-ABBOTT-12P-056-0922400-00

PATIENT
  Age: 73 Year
  Sex: Female

DRUGS (7)
  1. TROSPIUM CHLORIDE [Concomitant]
     Indication: PRODUCT USED FOR UNKNOWN INDICATION
  2. CEFTRIAXONE SODIUM [Concomitant]
     Indication: PYELONEPHRITIS
  3. SINEMET [Concomitant]
     Indication: PRODUCT USED FOR UNKNOWN INDICATION
  4. PROTON PUMP INHIBITORS [Concomitant]
     Indication: PRODUCT USED FOR UNKNOWN INDICATION
  5. ESCITALOPRAM [Concomitant]
     Indication: DEPRESSION
     Dates: end: 20111118
  6. HUMIRA [Suspect]
     Indication: PSORIATIC ARTHROPATHY
     Dates: start: 20060101, end: 20111205
  7. PREDNISONE [Concomitant]
     Indication: PSORIATIC ARTHROPATHY
     Dosage: 3MG DAILY

REACTIONS (17)
  - GAIT DISTURBANCE [None]
  - HAEMOLYTIC ANAEMIA [None]
  - THROMBOCYTOPENIA [None]
  - DEPRESSION [None]
  - DIARRHOEA [None]
  - WEIGHT DECREASED [None]
  - PYELONEPHRITIS [None]
  - CELL DEATH [None]
  - COMA [None]
  - INTERSTITIAL LUNG DISEASE [None]
  - HEPATOTOXICITY [None]
  - PYREXIA [None]
  - URINARY TRACT INFECTION ENTEROCOCCAL [None]
  - HYPERGAMMAGLOBULINAEMIA [None]
  - ERYSIPELAS [None]
  - GENERAL PHYSICAL HEALTH DETERIORATION [None]
  - DISSEMINATED TUBERCULOSIS [None]
